FAERS Safety Report 25876825 (Version 1)
Quarter: 2025Q4

REPORT INFORMATION
  Report Type: Report from Study
  Country: BR (occurrence: BR)
  Receive Date: 20251003
  Receipt Date: 20251003
  Transmission Date: 20260117
  Serious: Yes (Hospitalization)
  Sender: TAKEDA
  Company Number: BR-TAKEDA-BR202015870

PATIENT
  Age: 34 Year
  Sex: Male
  Weight: 80 kg

DRUGS (2)
  1. HEMO-8R [Suspect]
     Active Substance: ANTIHEMOPHILIC FACTOR, HUMAN RECOMBINANT
     Indication: Factor VIII deficiency
     Dosage: 2000 INTERNATIONAL UNIT, 2/WEEK
     Dates: start: 19950503
  2. HEMO-8R [Suspect]
     Active Substance: ANTIHEMOPHILIC FACTOR, HUMAN RECOMBINANT
     Dosage: 2000 INTERNATIONAL UNIT

REACTIONS (3)
  - Clavicle fracture [Recovered/Resolved]
  - Accident [Recovered/Resolved]
  - Treatment noncompliance [Unknown]

NARRATIVE: CASE EVENT DATE: 20200405
